FAERS Safety Report 12489619 (Version 1)
Quarter: 2016Q2

REPORT INFORMATION
  Report Type: Spontaneous
  Country: US (occurrence: US)
  Receive Date: 20160622
  Receipt Date: 20160622
  Transmission Date: 20160815
  Serious: Yes (Hospitalization)
  Sender: FDA-Public Use
  Company Number: US-TEVA-668000USA

PATIENT
  Sex: Female

DRUGS (1)
  1. TRAMADOL. [Suspect]
     Active Substance: TRAMADOL
     Indication: BACK PAIN
     Dosage: 200 MILLIGRAM DAILY;
     Route: 048

REACTIONS (6)
  - Paraesthesia [Unknown]
  - Dyspnoea [Unknown]
  - Vomiting [Unknown]
  - Throat irritation [Unknown]
  - Nausea [Unknown]
  - Hypoaesthesia [Unknown]
